FAERS Safety Report 12880935 (Version 1)
Quarter: 2016Q4

REPORT INFORMATION
  Report Type: Spontaneous
  Country: US (occurrence: US)
  Receive Date: 20161025
  Receipt Date: 20161025
  Transmission Date: 20170207
  Serious: Yes (Hospitalization)
  Sender: FDA-Public Use
  Company Number: None

PATIENT
  Age: 66 Year
  Sex: Female
  Weight: 108.1 kg

DRUGS (11)
  1. ASA [Concomitant]
     Active Substance: ASPIRIN
  2. CYMBALTA [Concomitant]
     Active Substance: DULOXETINE HYDROCHLORIDE
  3. COREG [Concomitant]
     Active Substance: CARVEDILOL
  4. DICLOFENAC [Concomitant]
     Active Substance: DICLOFENAC
  5. LANTUS [Suspect]
     Active Substance: INSULIN GLARGINE
     Indication: DIABETES MELLITUS
     Dosage: 30UNITS BID SQ CHRONIC
     Route: 058
  6. NEURONTIN [Concomitant]
     Active Substance: GABAPENTIN
  7. NEXIUM [Concomitant]
     Active Substance: ESOMEPRAZOLE MAGNESIUM
  8. LASIX [Concomitant]
     Active Substance: FUROSEMIDE
  9. LIDODERM [Concomitant]
     Active Substance: LIDOCAINE
  10. FE [Concomitant]
     Active Substance: IRON
  11. ATARAX [Concomitant]
     Active Substance: HYDROXYZINE\HYDROXYZINE HYDROCHLORIDE

REACTIONS (3)
  - Hypoglycaemia [None]
  - Unresponsive to stimuli [None]
  - Encephalopathy [None]

NARRATIVE: CASE EVENT DATE: 20150806
